FAERS Safety Report 5243991-1 (Version None)
Quarter: 2007Q1

REPORT INFORMATION
  Report Type: 
  Country: None (occurrence: None)
  Receive Date: 20070215
  Receipt Date: 20070130
  Transmission Date: 20070707
  Serious: Yes (Life-Threatening)
  Sender: FDA-Public Use
  Company Number: PHNU2006DE03858

PATIENT
  Age: 36 Year
  Sex: Male
  Weight: 95 kg

DRUGS (2)
  1. LIORESAL [Suspect]
     Indication: SPASTIC PARAPLEGIA
     Dosage: 150 MG WITHIN 5 MIN; INTRATHECAL
     Route: 037
     Dates: start: 20061120, end: 20061120
  2. LIORESAL [Concomitant]

REACTIONS (6)
  - ACCIDENTAL OVERDOSE [None]
  - LOSS OF CONSCIOUSNESS [None]
  - PNEUMONIA [None]
  - POISONING [None]
  - RESPIRATORY ARREST [None]
  - SOMNOLENCE [None]
